FAERS Safety Report 9300071 (Version 2)
Quarter: 2013Q1

REPORT INFORMATION
  Report Type: Spontaneous
  Country: JP (occurrence: None)
  Receive Date: 20121107
  Receipt Date: 20130208
  Transmission Date: 20140127
  Serious: Yes (Hospitalization, Other)
  Sender: FDA-Public Use
  Company Number: ADR-2010-9640

PATIENT
  Age: 73 Year
  Sex: Female

DRUGS (1)
  1. GABALON [Suspect]

REACTIONS (6)
  - Cellulitis [None]
  - Fall [None]
  - Subdural haematoma [None]
  - Muscle spasms [None]
  - Depressed level of consciousness [None]
  - Head injury [None]
